FAERS Safety Report 4279025-5 (Version None)
Quarter: 2004Q1

REPORT INFORMATION
  Report Type: 
  Country: None (occurrence: None)
  Receive Date: 20040122
  Receipt Date: 20040112
  Transmission Date: 20041129
  Serious: Yes (Life-Threatening, Other)
  Sender: FDA-Public Use
  Company Number: 200410142GDS

PATIENT
  Sex: Female

DRUGS (2)
  1. ASPIRIN [Suspect]
     Dosage: 81 MG, TOTAL DAILY, ORAL
     Route: 048
  2. ASPIRIN [Suspect]
     Dosage: 325 MG, TOTAL DAILY, ORAL
     Route: 048

REACTIONS (1)
  - PANCREATIC CARCINOMA [None]
